FAERS Safety Report 24216660 (Version 2)
Quarter: 2024Q3

REPORT INFORMATION
  Report Type: Spontaneous
  Country: GR (occurrence: GR)
  Receive Date: 20240816
  Receipt Date: 20240905
  Transmission Date: 20241017
  Serious: Yes (Death, Life-Threatening, Hospitalization)
  Sender: STRIDES
  Company Number: None

PATIENT
  Sex: Male

DRUGS (4)
  1. METHOTREXATE [Suspect]
     Active Substance: METHOTREXATE
     Indication: Arthritis reactive
     Dosage: UNK
     Route: 065
  2. AZATHIOPRINE [Suspect]
     Active Substance: AZATHIOPRINE
     Indication: Arthritis reactive
     Dosage: UNK
     Route: 065
  3. METHYLPREDNISOLONE [Suspect]
     Active Substance: METHYLPREDNISOLONE
     Indication: Arthritis reactive
     Dosage: UNK
     Route: 065
  4. INFLIXIMAB [Suspect]
     Active Substance: INFLIXIMAB
     Indication: Arthritis reactive
     Dosage: UNK
     Route: 065

REACTIONS (11)
  - Cutaneous vasculitis [Fatal]
  - Tubulointerstitial nephritis [Fatal]
  - Polyarthritis [Fatal]
  - Erythema nodosum [Fatal]
  - Cerebral infarction [Fatal]
  - Cerebral ischaemia [Fatal]
  - Intestinal ulcer [Fatal]
  - Leukoencephalopathy [Fatal]
  - Upper respiratory tract infection [Fatal]
  - Histoplasmosis disseminated [Fatal]
  - Disease progression [Fatal]
